FAERS Safety Report 23408838 (Version 4)
Quarter: 2024Q1

REPORT INFORMATION
  Report Type: Spontaneous
  Country: US (occurrence: US)
  Receive Date: 20240117
  Receipt Date: 20240226
  Transmission Date: 20240409
  Serious: No
  Sender: FDA-Public Use
  Company Number: US-JNJFOC-20231266086

PATIENT
  Age: 57 Year
  Sex: Female
  Weight: 108.96 kg

DRUGS (1)
  1. SIMPONI [Suspect]
     Active Substance: GOLIMUMAB
     Indication: Product used for unknown indication
     Dosage: STRENGTH: 50.00 MG / 0.50 ML
     Route: 058

REACTIONS (3)
  - Device issue [Unknown]
  - Product dose omission issue [Unknown]
  - Product label issue [Unknown]

NARRATIVE: CASE EVENT DATE: 20231221
